FAERS Safety Report 14742381 (Version 3)
Quarter: 2019Q2

REPORT INFORMATION
  Report Type: Spontaneous
  Country: US (occurrence: US)
  Receive Date: 20180410
  Receipt Date: 20190402
  Transmission Date: 20190711
  Serious: Yes (Other)
  Sender: FDA-Public Use
  Company Number: US-ASTRAZENECA-2018SE42915

PATIENT
  Sex: Male
  Weight: 117.8 kg

DRUGS (25)
  1. PRILOSEC [Suspect]
     Active Substance: OMEPRAZOLE MAGNESIUM
     Route: 048
     Dates: start: 200501, end: 201705
  2. SIMVASTATIN. [Concomitant]
     Active Substance: SIMVASTATIN
  3. LASIX [Concomitant]
     Active Substance: FUROSEMIDE
  4. NORVASC [Concomitant]
     Active Substance: AMLODIPINE BESYLATE
  5. WARFARIN [Concomitant]
     Active Substance: WARFARIN
  6. CLONIDINE. [Concomitant]
     Active Substance: CLONIDINE
  7. NEXIUM 24HR [Suspect]
     Active Substance: ESOMEPRAZOLE MAGNESIUM
     Route: 048
     Dates: start: 200501, end: 201705
  8. DEXILANT [Suspect]
     Active Substance: DEXLANSOPRAZOLE
     Route: 065
     Dates: start: 200501, end: 201705
  9. PREVACID [Suspect]
     Active Substance: LANSOPRAZOLE
     Route: 065
     Dates: start: 200501, end: 201705
  10. PROTONIX [Suspect]
     Active Substance: PANTOPRAZOLE SODIUM
     Route: 065
     Dates: start: 200501, end: 201705
  11. BENAZEPRIL [Concomitant]
     Active Substance: BENAZEPRIL HYDROCHLORIDE
  12. OXYCODONE HYDROCHLORIDE. [Concomitant]
     Active Substance: OXYCODONE HYDROCHLORIDE
  13. GABAPENTIN. [Concomitant]
     Active Substance: GABAPENTIN
  14. RANITIDINE. [Concomitant]
     Active Substance: RANITIDINE
  15. INDOMETHACIN. [Concomitant]
     Active Substance: INDOMETHACIN
  16. PREDNISONE. [Concomitant]
     Active Substance: PREDNISONE
  17. TRAMADOL. [Concomitant]
     Active Substance: TRAMADOL
  18. NEXIUM [Suspect]
     Active Substance: ESOMEPRAZOLE MAGNESIUM
     Route: 048
     Dates: start: 200501, end: 201705
  19. PRILOSEC OTC [Suspect]
     Active Substance: OMEPRAZOLE MAGNESIUM
     Route: 048
     Dates: start: 200501, end: 201705
  20. PREVACID 24 HR [Suspect]
     Active Substance: LANSOPRAZOLE
     Route: 065
     Dates: start: 200501, end: 201705
  21. ONDANSETRON [Concomitant]
     Active Substance: ONDANSETRON
  22. NEXIUM [Suspect]
     Active Substance: ESOMEPRAZOLE MAGNESIUM
     Route: 048
     Dates: start: 200301, end: 201601
  23. NEXIUM [Suspect]
     Active Substance: ESOMEPRAZOLE MAGNESIUM
     Route: 048
     Dates: start: 20030101, end: 20160101
  24. PRILOSEC [Suspect]
     Active Substance: OMEPRAZOLE MAGNESIUM
     Route: 048
     Dates: start: 200301, end: 201601
  25. MECLIZINE [Concomitant]
     Active Substance: MECLIZINE HYDROCHLORIDE

REACTIONS (4)
  - Chronic kidney disease [Unknown]
  - End stage renal disease [Unknown]
  - Renal injury [Unknown]
  - Acute kidney injury [Unknown]
